FAERS Safety Report 23233235 (Version 2)
Quarter: 2024Q1

REPORT INFORMATION
  Report Type: Other
  Country: CN (occurrence: None)
  Receive Date: 20231128
  Receipt Date: 20240117
  Transmission Date: 20240409
  Serious: Yes (Hospitalization)
  Sender: FDA-Public Use
  Company Number: CN-MLMSERVICE-20231114-4661124-1

PATIENT
  Age: 29 Year
  Sex: Male

DRUGS (12)
  1. MYCOPHENOLATE MOFETIL [Suspect]
     Active Substance: MYCOPHENOLATE MOFETIL
     Indication: Prophylaxis against transplant rejection
     Route: 065
     Dates: start: 2022, end: 2023
  2. TACROLIMUS [Suspect]
     Active Substance: TACROLIMUS
     Indication: Prophylaxis against transplant rejection
     Route: 065
     Dates: start: 2022, end: 2023
  3. URSODIOL [Concomitant]
     Active Substance: URSODIOL
     Indication: Primary biliary cholangitis
  4. CEFUROXIME [Concomitant]
     Active Substance: CEFUROXIME
  5. CASPOFUNGIN [Concomitant]
     Active Substance: CASPOFUNGIN
  6. SULFAMETHOXAZOLE [Concomitant]
     Active Substance: SULFAMETHOXAZOLE
  7. METHYLPREDNISOLONE [Concomitant]
     Active Substance: METHYLPREDNISOLONE
  8. MEROPENEM [Concomitant]
     Active Substance: MEROPENEM
  9. VANCOMYCIN [Concomitant]
     Active Substance: VANCOMYCIN
  10. DEXMEDETOMIDINE [Concomitant]
     Active Substance: DEXMEDETOMIDINE
     Dosage: FROM 0.3 MICROG/KG/H TO 0.5 MICROG/KG/H
  11. REMIFENTANIL [Concomitant]
     Active Substance: REMIFENTANIL
     Dosage: FROM 0.03 MICROG/KG/MIN TO 0.05 MICROG/KG/MIN
  12. HEPARIN [Concomitant]
     Active Substance: HEPARIN SODIUM

REACTIONS (2)
  - Pneumocystis jirovecii pneumonia [Recovered/Resolved]
  - Acute respiratory distress syndrome [Recovered/Resolved]

NARRATIVE: CASE EVENT DATE: 20230101
